FAERS Safety Report 22628189 (Version 1)
Quarter: 2023Q2

REPORT INFORMATION
  Report Type: Report from Study
  Country: IE (occurrence: IE)
  Receive Date: 20230622
  Receipt Date: 20230622
  Transmission Date: 20230721
  Serious: Yes (Hospitalization, Other)
  Sender: FDA-Public Use
  Company Number: IE-GLAXOSMITHKLINE-IE2023EME086107

PATIENT

DRUGS (1)
  1. MEPOLIZUMAB [Suspect]
     Active Substance: MEPOLIZUMAB
     Indication: Asthma
     Dosage: UNK, Q4W
     Dates: start: 20220926

REACTIONS (2)
  - Gastric cancer [Unknown]
  - Muscle atrophy [Unknown]
